FAERS Safety Report 18857504 (Version 1)
Quarter: 2021Q1

REPORT INFORMATION
  Report Type: Spontaneous
  Country: US (occurrence: US)
  Receive Date: 20210208
  Receipt Date: 20210208
  Transmission Date: 20210420
  Serious: Yes (Other)
  Sender: FDA-Public Use
  Company Number: US-TEVA-2021-US-1875518

PATIENT
  Age: 29 Year
  Sex: Male

DRUGS (1)
  1. NUVIGIL [Suspect]
     Active Substance: ARMODAFINIL
     Route: 065

REACTIONS (3)
  - Insomnia [Unknown]
  - Brain injury [Unknown]
  - Amnesia [Unknown]
